FAERS Safety Report 9659430 (Version 2)
Quarter: 2013Q4

REPORT INFORMATION
  Report Type: Spontaneous
  Country: GB (occurrence: GB)
  Receive Date: 20131031
  Receipt Date: 20131031
  Transmission Date: 20140711
  Serious: Yes (Death)
  Sender: FDA-Public Use
  Company Number: GB-TEVA-386337ISR

PATIENT
  Age: 82 Year
  Sex: Female
  Weight: 51 kg

DRUGS (9)
  1. CLOPIDOGREL [Suspect]
     Indication: CARDIAC DISORDER
     Dates: start: 20121101, end: 201211
  2. CLEXANE [Suspect]
     Indication: CARDIAC DISORDER
     Dates: start: 20121101, end: 201211
  3. ASPIRIN [Suspect]
     Indication: CARDIAC DISORDER
     Dates: start: 20121101, end: 201211
  4. CANDESARTAN [Concomitant]
  5. FLUOXETINE [Concomitant]
  6. INSULIN [Concomitant]
  7. INHALERS [Concomitant]
  8. SALBUTAMOL [Concomitant]
     Route: 055
  9. TIOTROPIUM [Concomitant]

REACTIONS (1)
  - Retroperitoneal haemorrhage [Fatal]
